FAERS Safety Report 11221149 (Version 1)
Quarter: 2015Q2

REPORT INFORMATION
  Report Type: Spontaneous
  Country: US (occurrence: None)
  Receive Date: 20150625
  Receipt Date: 20150625
  Transmission Date: 20150821
  Serious: Yes (Disabling)
  Sender: FDA-Public Use
  Company Number: None

PATIENT
  Age: 16 Year
  Sex: Female
  Weight: 61.24 kg

DRUGS (4)
  1. PENTASA [Concomitant]
     Active Substance: MESALAMINE
  2. MULTIVITAMIN WITH IRON [Concomitant]
     Active Substance: IRON\VITAMINS
  3. VITAMIN D [Concomitant]
     Active Substance: CHOLECALCIFEROL
  4. NEXIUM [Suspect]
     Active Substance: ESOMEPRAZOLE MAGNESIUM
     Indication: GASTROOESOPHAGEAL REFLUX DISEASE
     Dosage: 2 PILLS, ONCE DAILY, TAKEN BY MOUTH
     Route: 048

REACTIONS (3)
  - Diarrhoea [None]
  - Abdominal pain [None]
  - Clostridium test positive [None]

NARRATIVE: CASE EVENT DATE: 20150610
